FAERS Safety Report 5599951-4 (Version None)
Quarter: 2007Q4

REPORT INFORMATION
  Report Type: 
  Country: None (occurrence: None)
  Receive Date: 20071226
  Receipt Date: 20070921
  Transmission Date: 20080405
  Serious: Yes (Other)
  Sender: FDA-Public Use
  Company Number: 231574

PATIENT
  Age: 22 Year
  Sex: Female

DRUGS (1)
  1. RAPTIVA [Suspect]
     Indication: PSORIASIS
     Dosage: 1.1 ML, 1/WEEK,  SUBCUTANEOUS
     Route: 058
     Dates: start: 20060421

REACTIONS (1)
  - PSORIASIS [None]
